FAERS Safety Report 13234665 (Version 1)
Quarter: 2017Q1

REPORT INFORMATION
  Report Type: Spontaneous
  Country: US (occurrence: US)
  Receive Date: 20170214
  Receipt Date: 20170214
  Transmission Date: 20170428
  Serious: No
  Sender: FDA-Public Use
  Company Number: None

PATIENT
  Age: 56 Year
  Sex: Female

DRUGS (1)
  1. REMICADE [Suspect]
     Active Substance: INFLIXIMAB
     Indication: RHEUMATOID ARTHRITIS
     Dosage: Q6-8 WEEKS
     Route: 042
     Dates: start: 20170201, end: 20170201

REACTIONS (1)
  - Rash [None]

NARRATIVE: CASE EVENT DATE: 20170201
